FAERS Safety Report 13708752 (Version 1)
Quarter: 2017Q2

REPORT INFORMATION
  Report Type: Spontaneous
  Country: US (occurrence: US)
  Receive Date: 20170630
  Receipt Date: 20170630
  Transmission Date: 20170830
  Serious: No
  Sender: FDA-Public Use
  Company Number: US-IPSEN BIOPHARMACEUTICALS, INC.-2016-01782

PATIENT
  Sex: Female
  Weight: 68.04 kg

DRUGS (4)
  1. SOMATULINE DEPOT [Suspect]
     Active Substance: LANREOTIDE ACETATE
     Indication: PRODUCT USE IN UNAPPROVED INDICATION
  2. SOMATULINE DEPOT [Suspect]
     Active Substance: LANREOTIDE ACETATE
     Indication: HEPATOMEGALY
     Dosage: 90 MG
     Route: 058
     Dates: start: 201509, end: 20160216
  3. CYCLOSPORINE. [Concomitant]
     Active Substance: CYCLOSPORINE
  4. MICOPHENOLATE [Concomitant]

REACTIONS (1)
  - Drug ineffective [Unknown]
